FAERS Safety Report 15812507 (Version 1)
Quarter: 2019Q1

REPORT INFORMATION
  Report Type: Spontaneous
  Country: US (occurrence: US)
  Receive Date: 20190111
  Receipt Date: 20190111
  Transmission Date: 20190417
  Serious: No
  Sender: FDA-Public Use
  Company Number: US-ALLERGAN-1830575US

PATIENT
  Age: 83 Year
  Sex: Male

DRUGS (3)
  1. DALVANCE [Suspect]
     Active Substance: DALBAVANCIN
     Dosage: UNK, SINGLE
     Route: 042
  2. DALVANCE [Suspect]
     Active Substance: DALBAVANCIN
     Indication: OSTEOMYELITIS
     Dosage: UNK, SINGLE
     Route: 042
     Dates: start: 20180613, end: 20180613
  3. DALVANCE [Suspect]
     Active Substance: DALBAVANCIN
     Dosage: UNK, SINGLE
     Route: 042
     Dates: start: 20180606, end: 20180606

REACTIONS (5)
  - Hallucination, auditory [Unknown]
  - Rash [Unknown]
  - Off label use [Unknown]
  - Pruritus [Unknown]
  - Hallucination, visual [Unknown]

NARRATIVE: CASE EVENT DATE: 20180606
